FAERS Safety Report 7195618-X (Version None)
Quarter: 2010Q4

REPORT INFORMATION
  Report Type: 
  Country: None (occurrence: None)
  Receive Date: 20101223
  Receipt Date: 20101220
  Transmission Date: 20110411
  Serious: Yes (Other)
  Sender: FDA-Public Use
  Company Number: FR-MERCK-1012FRA00127

PATIENT
  Age: 78 Year
  Sex: Female

DRUGS (11)
  1. FOSAMAX [Suspect]
     Route: 048
     Dates: start: 20090101
  2. PREDNISONE [Suspect]
     Indication: DERMATOMYOSITIS
     Route: 048
     Dates: start: 20090701
  3. LETROZOLE [Suspect]
     Indication: BREAST CANCER
     Route: 048
  4. HYDROXYCHLOROQUINE SULFATE [Suspect]
     Indication: DERMATOMYOSITIS
     Route: 048
     Dates: start: 20090501, end: 20101001
  5. METHOTREXATE SODIUM [Suspect]
     Indication: DERMATOMYOSITIS
     Route: 051
  6. FOLIC ACID [Suspect]
     Route: 048
  7. PANTOPRAZOLE SODIUM [Suspect]
     Route: 048
     Dates: start: 20090101
  8. CALCIUM CARBONATE AND CHOLECALCIFEROL [Suspect]
     Route: 048
     Dates: start: 20090801
  9. VALACYCLOVIR HYDROCHLORIDE [Suspect]
     Route: 048
  10. ESCITALOPRAM OXALATE [Suspect]
     Indication: DEPRESSION
     Route: 048
  11. IRBESARTAN [Suspect]
     Indication: HYPERTENSION
     Route: 048

REACTIONS (1)
  - CATARACT [None]
